FAERS Safety Report 15171056 (Version 1)
Quarter: 2018Q3

REPORT INFORMATION
  Report Type: Spontaneous
  Country: FR (occurrence: FR)
  Receive Date: 20180720
  Receipt Date: 20180720
  Transmission Date: 20181010
  Serious: Yes (Other)
  Sender: FDA-Public Use
  Company Number: FR-JNJFOC-20180722780

PATIENT
  Age: 28 Year
  Sex: Male

DRUGS (4)
  1. AUGMENTIN [Suspect]
     Active Substance: AMOXICILLIN\CLAVULANATE POTASSIUM
     Indication: LIMB INJURY
     Route: 048
     Dates: start: 20180510, end: 20180514
  2. BETADINE [Suspect]
     Active Substance: POVIDONE-IODINE
     Indication: LIMB INJURY
     Route: 003
     Dates: start: 20180501, end: 20180515
  3. KETODERM (KETOCONAZOLE) [Suspect]
     Active Substance: KETOCONAZOLE
     Indication: LIMB INJURY
     Route: 003
     Dates: start: 20180501
  4. ONCTOSE (DIPHENHYDRAMINE\LIDOCAINE) [Suspect]
     Active Substance: DIPHENHYDRAMINE\LIDOCAINE
     Indication: LIMB INJURY
     Route: 003
     Dates: start: 20180501, end: 20180515

REACTIONS (1)
  - Erythema multiforme [Recovering/Resolving]

NARRATIVE: CASE EVENT DATE: 20180513
